FAERS Safety Report 21624270 (Version 2)
Quarter: 2022Q4

REPORT INFORMATION
  Report Type: Spontaneous
  Country: CN (occurrence: CN)
  Receive Date: 20221121
  Receipt Date: 20221220
  Transmission Date: 20230112
  Serious: Yes (Other)
  Sender: FDA-Public Use
  Company Number: CN-BEIGENE-BGN-2022-010987

PATIENT

DRUGS (8)
  1. BRUKINSA [Suspect]
     Active Substance: ZANUBRUTINIB
     Indication: Diffuse large B-cell lymphoma
     Dosage: UNK
     Dates: start: 202106
  2. BRUKINSA [Suspect]
     Active Substance: ZANUBRUTINIB
     Dosage: UNK
     Dates: start: 202206
  3. BRUKINSA [Suspect]
     Active Substance: ZANUBRUTINIB
     Dosage: 1 CAPSULE IN THE MORNING AND 1 CAPSULE IN THE EVENING.
     Dates: start: 202201
  4. RITUXIMAB [Concomitant]
     Active Substance: RITUXIMAB
     Indication: Diffuse large B-cell lymphoma
     Dosage: 8 CYCLES
     Dates: start: 202102
  5. CYCLOPHOSPHAMIDE [Concomitant]
     Active Substance: CYCLOPHOSPHAMIDE
     Indication: Diffuse large B-cell lymphoma
     Dosage: 8 CYCLES
     Dates: start: 202102
  6. DOXORUBICIN [Concomitant]
     Active Substance: DOXORUBICIN
     Indication: Diffuse large B-cell lymphoma
     Dosage: 8 CYCLES
     Dates: start: 202102
  7. ONCOVIN [Concomitant]
     Active Substance: VINCRISTINE SULFATE
     Indication: Diffuse large B-cell lymphoma
     Dosage: 8 CYCLES
     Dates: start: 202102
  8. PREDNISONE [Concomitant]
     Active Substance: PREDNISONE
     Indication: Diffuse large B-cell lymphoma
     Dosage: 8 CYCLES
     Dates: start: 202102

REACTIONS (12)
  - Pneumonia [Recovered/Resolved]
  - Papilloedema [Recovered/Resolved]
  - Pericardial effusion [Unknown]
  - Skin discolouration [Recovered/Resolved]
  - Dry skin [Recovered/Resolved]
  - White blood cell count decreased [Unknown]
  - Renal cyst [Unknown]
  - Hepatic steatosis [Unknown]
  - Blood cholesterol increased [Unknown]
  - Anaemia [Unknown]
  - Erythema [Recovering/Resolving]
  - Off label use [Unknown]

NARRATIVE: CASE EVENT DATE: 20220101
